FAERS Safety Report 8421336-3 (Version None)
Quarter: 2012Q2

REPORT INFORMATION
  Report Type: 
  Country: None (occurrence: None)
  Receive Date: 20120608
  Receipt Date: 20120531
  Transmission Date: 20120825
  Serious: Yes (Hospitalization)
  Sender: FDA-Public Use
  Company Number: PHHY2012DE047461

PATIENT
  Age: 77 Year
  Sex: Female
  Weight: 59 kg

DRUGS (9)
  1. ERGOCALCIFEROL [Concomitant]
     Dosage: 2 DF, QD
     Route: 048
  2. OMEPRAZOLE [Concomitant]
     Dosage: 20 MG, QD
     Route: 048
  3. PLAVIX [Concomitant]
     Dosage: 1 DF, UNK
     Route: 048
  4. BISOPROLOL FUMARATE [Concomitant]
     Dosage: 1 DF
     Route: 048
  5. HYDROCHLOROTHIAZIDE [Concomitant]
     Dosage: 12.5 MG, QD
     Route: 048
  6. ENALAPRIL MALEATE [Concomitant]
     Dosage: 1.5 DF,
     Route: 048
  7. MAGNESIOCARD [Concomitant]
     Dosage: 2.5 MMOL, 1-2 TABLET
     Route: 048
  8. GLEEVEC [Suspect]
     Indication: GASTROINTESTINAL STROMAL TUMOUR
     Dosage: 400 MG, DAILY
     Route: 048
     Dates: start: 20110903, end: 20111025
  9. MIRTAZAPINE [Concomitant]
     Dosage: 1 DF, QD
     Route: 048

REACTIONS (7)
  - GAMMA-GLUTAMYLTRANSFERASE INCREASED [None]
  - CHRONIC HEPATITIS [None]
  - DRUG-INDUCED LIVER INJURY [None]
  - ASPARTATE AMINOTRANSFERASE INCREASED [None]
  - ALANINE AMINOTRANSFERASE INCREASED [None]
  - BLOOD ALKALINE PHOSPHATASE INCREASED [None]
  - HEPATIC FIBROSIS [None]
